FAERS Safety Report 9181160 (Version 2)
Quarter: 2013Q1

REPORT INFORMATION
  Report Type: Spontaneous
  Country: US (occurrence: US)
  Receive Date: 20130322
  Receipt Date: 20130322
  Transmission Date: 20140127
  Serious: No
  Sender: FDA-Public Use
  Company Number: US-MYLANLABS-2012S1010326

PATIENT
  Age: 54 Year
  Sex: Female
  Weight: 80.29 kg

DRUGS (6)
  1. EMSAM [Suspect]
     Indication: MAJOR DEPRESSION
     Route: 062
     Dates: start: 20111031, end: 20120612
  2. ABILIFY [Concomitant]
  3. KLONOPIN [Concomitant]
  4. LISINOPRIL [Concomitant]
  5. DEXILANT [Concomitant]
  6. PRILOSEC [Concomitant]

REACTIONS (1)
  - Application site discolouration [Not Recovered/Not Resolved]
